FAERS Safety Report 9625573 (Version 1)
Quarter: 2013Q4

REPORT INFORMATION
  Report Type: Spontaneous
  Country: CA (occurrence: CA)
  Receive Date: 20131016
  Receipt Date: 20131016
  Transmission Date: 20140711
  Serious: Yes (Hospitalization, Other)
  Sender: FDA-Public Use
  Company Number: CA-ASTRAZENECA-2013SE74877

PATIENT
  Age: 783 Month
  Sex: Female

DRUGS (1)
  1. SYMBICORT TURBUHALER [Suspect]
     Indication: ASTHMA
     Dosage: 8 PUFFS TOTAL 4 TIMES PER
     Route: 055
     Dates: start: 2003

REACTIONS (2)
  - Dyspnoea [Recovered/Resolved]
  - Intentional drug misuse [Unknown]
